FAERS Safety Report 8111007 (Version 8)
Quarter: 2013Q3

REPORT INFORMATION
  Report Type: Report from Study
  Country: BR (occurrence: BR)
  Receive Date: 20110829
  Receipt Date: 20130806
  Transmission Date: 20140515
  Serious: Yes (Other)
  Sender: FDA-Public Use
  Company Number: BR-ROCHE-728131

PATIENT
  Age: 38 Year
  Sex: Female
  Weight: 60 kg

DRUGS (26)
  1. ACTEMRA [Suspect]
     Indication: RHEUMATOID ARTHRITIS
     Route: 065
     Dates: start: 20100701, end: 20130104
  2. ACTEMRA [Suspect]
     Dosage: FORM: INFUSION.
     Route: 042
     Dates: start: 20100714, end: 20100714
  3. ACTEMRA [Suspect]
     Route: 042
     Dates: start: 20100812, end: 20100812
  4. ACTEMRA [Suspect]
     Route: 042
     Dates: start: 20100909, end: 20100909
  5. ACTEMRA [Suspect]
     Route: 042
     Dates: start: 20101124, end: 20101124
  6. ACTEMRA [Suspect]
     Route: 042
     Dates: start: 20101222, end: 20101222
  7. ACTEMRA [Suspect]
     Dosage: LATEST TOCILIZUMAB DOSE 18 FEBRUARY 2011
     Route: 042
  8. ACTEMRA [Suspect]
     Dosage: FORM: INFUSION
     Route: 042
  9. BUPROPION HYDROCHLORIDE [Concomitant]
     Route: 065
  10. PROPRANOLOL [Concomitant]
  11. AMYTRIL [Concomitant]
  12. FOLIC ACID [Concomitant]
  13. FERROUS SULFATE [Concomitant]
     Dosage: FREQ: ONCE PER DAY
     Route: 065
  14. LORAX [Concomitant]
     Indication: INSOMNIA
     Route: 065
  15. OMEPRAZOLE [Concomitant]
  16. B COMPLEX [Concomitant]
  17. PREDSIM [Concomitant]
     Indication: RHEUMATOID ARTHRITIS
  18. FLUOXETINE [Concomitant]
     Route: 065
  19. ISONIAZIDE [Concomitant]
     Route: 065
  20. LOSARTAN [Concomitant]
     Route: 065
  21. ZETRON [Concomitant]
     Route: 065
  22. BAMIFIX [Concomitant]
  23. METHOTREXATE [Concomitant]
     Route: 065
  24. PREDNISONE [Concomitant]
     Dosage: ON THE FOLLOWING DAY
     Route: 065
  25. TYLENOL [Concomitant]
     Route: 065
  26. DICLOFENAC POTASSIUM [Concomitant]
     Route: 065

REACTIONS (24)
  - Pneumonia [Recovered/Resolved]
  - Headache [Recovered/Resolved]
  - Nausea [Recovering/Resolving]
  - Alopecia [Recovering/Resolving]
  - Fatigue [Recovered/Resolved]
  - Vomiting [Recovered/Resolved]
  - Decreased appetite [Recovered/Resolved]
  - Influenza [Recovered/Resolved]
  - White blood cell count increased [Recovered/Resolved]
  - Dyspnoea [Not Recovered/Not Resolved]
  - Therapeutic response decreased [Not Recovered/Not Resolved]
  - Pneumonia [Recovering/Resolving]
  - Ear infection [Recovering/Resolving]
  - Tuberculin test positive [Not Recovered/Not Resolved]
  - Fatigue [Not Recovered/Not Resolved]
  - Urinary tract infection [Unknown]
  - Insomnia [Not Recovered/Not Resolved]
  - Hypertension [Not Recovered/Not Resolved]
  - Urinary tract infection [Not Recovered/Not Resolved]
  - Malaise [Not Recovered/Not Resolved]
  - Immunodeficiency [Unknown]
  - Pulmonary fibrosis [Unknown]
  - Nausea [Unknown]
  - Blood pressure decreased [Unknown]
